FAERS Safety Report 14581381 (Version 3)
Quarter: 2019Q1

REPORT INFORMATION
  Report Type: Report from Study
  Country: US (occurrence: US)
  Receive Date: 20180228
  Receipt Date: 20190226
  Transmission Date: 20190417
  Serious: Yes (Other)
  Sender: FDA-Public Use
  Company Number: US-ASTELLAS-2018US009670

PATIENT
  Sex: Female

DRUGS (3)
  1. MIRABEGRON [Suspect]
     Active Substance: MIRABEGRON
     Route: 048
  2. MIRABEGRON [Suspect]
     Active Substance: MIRABEGRON
     Route: 048
  3. MIRABEGRON [Suspect]
     Active Substance: MIRABEGRON
     Indication: URINARY INCONTINENCE
     Dosage: UNK UNK, UNKNOWN FREQ.
     Route: 048

REACTIONS (3)
  - Memory impairment [Not Recovered/Not Resolved]
  - Prescribed overdose [Unknown]
  - Product use in unapproved indication [Unknown]
